FAERS Safety Report 17739412 (Version 1)
Quarter: 2020Q2

REPORT INFORMATION
  Report Type: Report from Study
  Country: BE (occurrence: BE)
  Receive Date: 20200504
  Receipt Date: 20200504
  Transmission Date: 20200714
  Serious: Yes (Hospitalization, Other)
  Sender: FDA-Public Use
  Company Number: BE-TEVA-2020-BE-1229871

PATIENT
  Age: 75 Year
  Sex: Male
  Weight: 65 kg

DRUGS (21)
  1. IRINOTECAN [Suspect]
     Active Substance: IRINOTECAN
     Dosage: 235 MG
     Route: 042
     Dates: start: 20190314
  2. BEVACIZUMAB. [Suspect]
     Active Substance: BEVACIZUMAB
     Dosage: 290 MG, INFUSION, SOLUTION
     Route: 042
     Dates: start: 20190704
  3. BEVACIZUMAB. [Suspect]
     Active Substance: BEVACIZUMAB
     Dosage: INFUSION, SOLUTION, 310 MG
     Route: 042
     Dates: start: 20190314
  4. MOVICOL [Concomitant]
     Active Substance: POLYETHYLENE GLYCOL 3350\POTASSIUM CHLORIDE\SODIUM BICARBONATE\SODIUM CHLORIDE
     Dates: start: 20190130
  5. FLUOROURACIL. [Suspect]
     Active Substance: FLUOROURACIL
     Indication: COLORECTAL CANCER METASTATIC
     Dosage: 4873.9 MG
     Route: 042
     Dates: start: 20190314
  6. ENTEROL [SACCHAROMYCES BOULARDII] [Concomitant]
  7. LONSURF [Concomitant]
     Active Substance: TIPIRACIL HYDROCHLORIDE\TRIFLURIDINE
     Dates: start: 20190801, end: 20190811
  8. IRINOTECAN [Suspect]
     Active Substance: IRINOTECAN
     Indication: COLORECTAL CANCER METASTATIC
     Dosage: 153 MG
     Route: 042
     Dates: start: 20190704
  9. PANTOMED [PANTOPRAZOLE SODIUM SESQUIHYDRATE] [Concomitant]
     Active Substance: PANTOPRAZOLE SODIUM
     Dates: start: 20180803
  10. FLUOROURACIL. [Suspect]
     Active Substance: FLUOROURACIL
     Dosage: 2369.4 MG
     Route: 042
     Dates: start: 20190704
  11. BUSCOPAN [Concomitant]
     Active Substance: BUTYLSCOPOLAMINE BROMIDE
     Dates: start: 20181128
  12. LEUCOVORIN [FOLINIC ACID] [Suspect]
     Active Substance: LEUCOVORIN
     Dosage: 2369.4 MG
     Route: 042
     Dates: start: 20190704
  13. LEUCOVORIN [FOLINIC ACID] [Suspect]
     Active Substance: LEUCOVORIN
     Dosage: 4873.9 MG
     Route: 042
     Dates: start: 20190314
  14. IMODIUM [Concomitant]
     Active Substance: LOPERAMIDE HYDROCHLORIDE
     Dates: start: 20190130
  15. IRINOTECAN [Suspect]
     Active Substance: IRINOTECAN
     Dosage: 243 MG
     Route: 065
     Dates: start: 20190131
  16. BEVACIZUMAB. [Suspect]
     Active Substance: BEVACIZUMAB
     Indication: COLORECTAL CANCER METASTATIC
     Dosage: INFUSION, SOLUTION, 330 MG
     Route: 042
     Dates: start: 20190131
  17. FLUOROURACIL. [Suspect]
     Active Substance: FLUOROURACIL
     Dosage: 5026.1 MG
     Route: 065
     Dates: start: 20190131
  18. LEUCOVORIN [FOLINIC ACID] [Suspect]
     Active Substance: LEUCOVORIN
     Indication: COLORECTAL CANCER METASTATIC
     Dosage: 5026.1 MG
     Route: 065
     Dates: start: 20190131
  19. BEVACIZUMAB. [Suspect]
     Active Substance: BEVACIZUMAB
     Dosage: 290 MG, INFUSION, SOLUTION
     Route: 042
     Dates: start: 20190811
  20. DUROGESIC [Concomitant]
     Active Substance: FENTANYL
     Dates: start: 20190821
  21. OXYNORM [Concomitant]
     Active Substance: OXYCODONE HYDROCHLORIDE
     Dates: start: 20190821

REACTIONS (13)
  - Orthostatic hypotension [Not Recovered/Not Resolved]
  - Diarrhoea [Not Recovered/Not Resolved]
  - Intestinal obstruction [Recovered/Resolved]
  - Benign prostatic hyperplasia [Not Recovered/Not Resolved]
  - Pyrexia [Recovered/Resolved]
  - Dermatitis allergic [Recovered/Resolved]
  - Small intestinal obstruction [Recovered/Resolved]
  - Cholangitis acute [Recovered/Resolved]
  - Obstruction gastric [Recovered/Resolved]
  - Neutropenia [Recovered/Resolved]
  - Platelet count decreased [Not Recovered/Not Resolved]
  - Anaemia [Not Recovered/Not Resolved]
  - Stomatitis [Recovered/Resolved]

NARRATIVE: CASE EVENT DATE: 20190131
